FAERS Safety Report 15403338 (Version 2)
Quarter: 2018Q3

REPORT INFORMATION
  Report Type: Report from Study
  Country: KR (occurrence: KR)
  Receive Date: 20180919
  Receipt Date: 20180928
  Transmission Date: 20181010
  Serious: Yes (Hospitalization)
  Sender: FDA-Public Use
  Company Number: KR-PFIZER INC-2018374985

PATIENT
  Age: 55 Year
  Sex: Male
  Weight: 54 kg

DRUGS (26)
  1. LANSOPRAZOLE. [Concomitant]
     Active Substance: LANSOPRAZOLE
     Dosage: UNK
     Dates: start: 20180626
  2. MOTILITONE [Concomitant]
     Active Substance: HERBALS
     Dosage: IPOMOEA NIL SEED
     Dates: start: 20180724
  3. DEXAMETHASONE. [Concomitant]
     Active Substance: DEXAMETHASONE
     Dosage: UNK
     Dates: start: 20180809
  4. CHLORPHENIRAMINE [CHLORPHENAMINE] [Concomitant]
     Dosage: UNK
     Dates: start: 20180809, end: 20180809
  5. ACETAMINOPHEN. [Concomitant]
     Active Substance: ACETAMINOPHEN
     Dosage: UNK
     Dates: start: 20180703
  6. OXYCODONE [Concomitant]
     Active Substance: OXYCODONE
     Dosage: UNK
     Dates: start: 20180615
  7. NALOXONE/OXYCODONE [Concomitant]
     Dosage: UNK
     Dates: start: 20180726, end: 20180830
  8. DINUTUXIMAB [Suspect]
     Active Substance: DINUTUXIMAB
     Indication: SMALL CELL LUNG CANCER
     Dosage: 24 MG, TOTAL DAILY DOSE, CYCLE 1, IV DRIP
     Route: 041
     Dates: start: 20180809, end: 20180904
  9. DINUTUXIMAB [Suspect]
     Active Substance: DINUTUXIMAB
     Dosage: 24 MG, TOTAL DAILY DOSE, CYCLE 2
     Route: 041
     Dates: start: 20180904
  10. METOCLOPRAMIDE. [Concomitant]
     Active Substance: METOCLOPRAMIDE
     Dosage: UNK
     Dates: start: 20180809, end: 20180809
  11. IRINOTECAN HCL [Suspect]
     Active Substance: IRINOTECAN HYDROCHLORIDE
     Dosage: UNK
     Route: 041
  12. ACETAMINOPHEN. [Concomitant]
     Active Substance: ACETAMINOPHEN
     Dosage: UNK
     Dates: start: 20180809
  13. PALONOSETRON HYDROCHLORIDE. [Concomitant]
     Active Substance: PALONOSETRON HYDROCHLORIDE
     Dosage: UNK
     Dates: start: 20180809
  14. IRINOTECAN HCL [Suspect]
     Active Substance: IRINOTECAN HYDROCHLORIDE
     Dosage: 525 MG, TOTAL DAILY DOSE, CYCLE 2
     Route: 041
     Dates: start: 20180904
  15. DINUTUXIMAB [Suspect]
     Active Substance: DINUTUXIMAB
     Dosage: 24 MG, TOTAL DAILY DOSE, CYCLE 1, IV DRIP
     Route: 041
  16. DINUTUXIMAB [Suspect]
     Active Substance: DINUTUXIMAB
     Dosage: UNK
     Route: 041
  17. ACEBROPHYLLINE [Concomitant]
     Dosage: UNK
     Dates: start: 20171120
  18. LEVODROPROPIZINE [Concomitant]
     Active Substance: LEVODROPROPIZINE
     Dosage: UNK
     Dates: start: 20180130
  19. MEGESTROL [Concomitant]
     Active Substance: MEGESTROL
     Dosage: UNK
     Dates: start: 20180719
  20. PETHIDINE [Concomitant]
     Active Substance: MEPERIDINE
     Dosage: UNK
     Dates: start: 20180809, end: 20180809
  21. SODIUM CHLORIDE. [Concomitant]
     Active Substance: SODIUM CHLORIDE
     Dosage: UNK
     Dates: start: 20180809
  22. MORPHINE SULPHATE [Concomitant]
     Active Substance: MORPHINE SULFATE
     Dosage: UNK
     Dates: start: 20180809, end: 20180809
  23. LANSOPRAZOLE. [Concomitant]
     Active Substance: LANSOPRAZOLE
     Dosage: UNK
     Dates: start: 20180118
  24. IRINOTECAN HCL [Suspect]
     Active Substance: IRINOTECAN HYDROCHLORIDE
     Indication: SMALL CELL LUNG CANCER
     Dosage: 525 MG, TOTAL DAILY DOSE, CYCLE 1, IV DRIP
     Route: 041
     Dates: start: 20180809
  25. IRINOTECAN HCL [Suspect]
     Active Substance: IRINOTECAN HYDROCHLORIDE
     Dosage: 525 MG, TOTAL DAILY DOSE, CYCLE 1, IV DRIP
     Route: 041
  26. DIOSMECTITE [Concomitant]
     Active Substance: MONTMORILLONITE
     Dosage: UNK
     Dates: start: 20180817, end: 20180820

REACTIONS (1)
  - Pneumonia [Recovered/Resolved]

NARRATIVE: CASE EVENT DATE: 20180827
